FAERS Safety Report 10059874 (Version 1)
Quarter: 2014Q2

REPORT INFORMATION
  Report Type: Spontaneous
  Country: US (occurrence: US)
  Receive Date: 20140404
  Receipt Date: 20140404
  Transmission Date: 20141212
  Serious: No
  Sender: FDA-Public Use
  Company Number: US-GLAXOSMITHKLINE-A1045037A

PATIENT
  Age: 23 Year
  Sex: Female

DRUGS (1)
  1. ALLI [Suspect]
     Indication: WEIGHT DECREASED

REACTIONS (5)
  - Change of bowel habit [Not Recovered/Not Resolved]
  - Frequent bowel movements [Not Recovered/Not Resolved]
  - Abdominal pain [Not Recovered/Not Resolved]
  - Painful defaecation [Not Recovered/Not Resolved]
  - Malaise [Not Recovered/Not Resolved]
